FAERS Safety Report 9018188 (Version 1)
Quarter: 2013Q1

REPORT INFORMATION
  Report Type: Spontaneous
  Country: US (occurrence: None)
  Receive Date: 20130111
  Receipt Date: 20130111
  Transmission Date: 20140127
  Serious: Yes (Disabling)
  Sender: FDA-Public Use
  Company Number: None

PATIENT
  Age: 66 Year
  Sex: Female
  Weight: 75.3 kg

DRUGS (1)
  1. LEVOTHYROXINE [Suspect]
     Indication: BLOOD THYROID STIMULATING HORMONE
     Dosage: AM
     Route: 048
     Dates: start: 20121115, end: 20121218

REACTIONS (16)
  - Paraesthesia [None]
  - Sensory disturbance [None]
  - Lip disorder [None]
  - Musculoskeletal stiffness [None]
  - Pruritus [None]
  - Hypoaesthesia [None]
  - Feeling abnormal [None]
  - Nervousness [None]
  - Sleep disorder [None]
  - Dizziness [None]
  - Fatigue [None]
  - Dysgeusia [None]
  - Nerve injury [None]
  - Impaired work ability [None]
  - Economic problem [None]
  - Product quality issue [None]
